FAERS Safety Report 25654350 (Version 7)
Quarter: 2025Q4

REPORT INFORMATION
  Report Type: Report from Study
  Country: US (occurrence: US)
  Receive Date: 20250807
  Receipt Date: 20251114
  Transmission Date: 20260117
  Serious: No
  Sender: JOHNSON AND JOHNSON
  Company Number: US-JNJFOC-20250804159

PATIENT
  Age: 74 Year
  Sex: Female

DRUGS (1)
  1. TREMFYA [Suspect]
     Active Substance: GUSELKUMAB
     Indication: Crohn^s disease
     Dosage: STRENGTH: 200.00 MG / 2.00 ML?START DATE: 25-JUL-2025?LOADING DOSE:400 MG
     Route: 065

REACTIONS (6)
  - Vision blurred [Unknown]
  - Accidental exposure to product [Unknown]
  - Device leakage [Unknown]
  - Injection site oedema [Unknown]
  - Product dose omission issue [Unknown]
  - Bowel movement irregularity [Recovering/Resolving]

NARRATIVE: CASE EVENT DATE: 20250101
